FAERS Safety Report 8920199 (Version 1)
Quarter: 2012Q4

REPORT INFORMATION
  Report Type: 
  Country: US (occurrence: US)
  Receive Date: 20121122
  Receipt Date: 20121122
  Transmission Date: 20130627
  Serious: Yes (Hospitalization, Other)
  Sender: FDA-Public Use
  Company Number: US-ROCHE-1090100

PATIENT
  Age: 16 Year
  Sex: Male
  Weight: 97.61 kg

DRUGS (2)
  1. ACCUTANE [Suspect]
     Indication: ACNE CYSTIC
     Route: 048
     Dates: start: 199811, end: 199904
  2. BENADRYL [Concomitant]

REACTIONS (8)
  - Crohn^s disease [Unknown]
  - Inflammatory bowel disease [Unknown]
  - Suicidal ideation [Unknown]
  - Emotional distress [Unknown]
  - Irritable bowel syndrome [Unknown]
  - Dry skin [Unknown]
  - Lip dry [Unknown]
  - Arthritis [Unknown]
